FAERS Safety Report 5354752-7 (Version None)
Quarter: 2007Q2

REPORT INFORMATION
  Report Type: 
  Country: None (occurrence: None)
  Receive Date: 20070611
  Receipt Date: 20070525
  Transmission Date: 20071010
  Serious: Yes (Hospitalization, Other)
  Sender: FDA-Public Use
  Company Number: 07062130

PATIENT
  Age: 70 Year
  Sex: Female

DRUGS (4)
  1. CARBAMAZEPINE [Suspect]
     Indication: DRUG DETOXIFICATION
     Dosage: 500MG, QD, ORAL
     Route: 048
  2. ALPRAZOLAM [Concomitant]
  3. MELPERONE (MELPERONE) [Concomitant]
  4. DIAZEPAM [Concomitant]

REACTIONS (3)
  - ALANINE AMINOTRANSFERASE INCREASED [None]
  - GAMMA-GLUTAMYLTRANSFERASE INCREASED [None]
  - NO THERAPEUTIC RESPONSE [None]
